FAERS Safety Report 5635981-1 (Version None)
Quarter: 2008Q1

REPORT INFORMATION
  Report Type: 
  Country: None (occurrence: None)
  Receive Date: 20080224
  Receipt Date: 20080213
  Transmission Date: 20080703
  Serious: Yes (Other)
  Sender: FDA-Public Use
  Company Number: PHHY2008JP01748

PATIENT
  Age: 65 Year
  Sex: Male

DRUGS (1)
  1. FLUVASTATIN [Suspect]
     Dosage: 20 MG/ DAY
     Route: 048

REACTIONS (1)
  - THROMBOTIC THROMBOCYTOPENIC PURPURA [None]
